FAERS Safety Report 14019114 (Version 10)
Quarter: 2018Q2

REPORT INFORMATION
  Report Type: Report from Study
  Country: AU (occurrence: AU)
  Receive Date: 20170928
  Receipt Date: 20180620
  Transmission Date: 20180711
  Serious: Yes (Other)
  Sender: FDA-Public Use
  Company Number: PHHY2017AU140796

PATIENT
  Sex: Female
  Weight: 58 kg

DRUGS (9)
  1. GILENYA [Suspect]
     Active Substance: FINGOLIMOD HYDROCHLORIDE
     Indication: RELAPSING-REMITTING MULTIPLE SCLEROSIS
     Dosage: 0.5 MG, UNK
     Route: 048
     Dates: start: 20170509
  2. LYRICA [Concomitant]
     Active Substance: PREGABALIN
     Indication: PRODUCT USED FOR UNKNOWN INDICATION
     Route: 065
  3. SALPRAZ [Concomitant]
     Indication: PRODUCT USED FOR UNKNOWN INDICATION
     Route: 065
  4. GILENYA [Suspect]
     Active Substance: FINGOLIMOD HYDROCHLORIDE
     Dosage: 0.5 MG, UNK
     Route: 048
     Dates: start: 20171024
  5. CARDIPRIN [Concomitant]
     Indication: PRODUCT USED FOR UNKNOWN INDICATION
     Route: 065
  6. BETMIGA [Concomitant]
     Active Substance: MIRABEGRON
     Indication: INCONTINENCE
     Route: 065
  7. RANITIDINE. [Concomitant]
     Active Substance: RANITIDINE
     Indication: GASTROOESOPHAGEAL REFLUX DISEASE
     Dosage: UNK
     Route: 048
  8. TOPAMAX [Suspect]
     Active Substance: TOPIRAMATE
     Indication: HEADACHE
     Route: 065
  9. VITAMIN D [Concomitant]
     Active Substance: CHOLECALCIFEROL
     Indication: PRODUCT USED FOR UNKNOWN INDICATION
     Route: 065

REACTIONS (27)
  - Immunodeficiency [Not Recovered/Not Resolved]
  - Pain [Recovered/Resolved]
  - Ovarian cyst [Recovered/Resolved]
  - Multiple sclerosis relapse [Not Recovered/Not Resolved]
  - Headache [Not Recovered/Not Resolved]
  - Peroneal nerve palsy [Not Recovered/Not Resolved]
  - Fatigue [Not Recovered/Not Resolved]
  - Heart rate increased [Recovered/Resolved]
  - Dysphonia [Not Recovered/Not Resolved]
  - White blood cell count increased [Not Recovered/Not Resolved]
  - Fall [Not Recovered/Not Resolved]
  - Oropharyngeal pain [Not Recovered/Not Resolved]
  - Hepatic enzyme increased [Not Recovered/Not Resolved]
  - Gastrointestinal haemorrhage [Recovered/Resolved]
  - Gastrointestinal pain [Unknown]
  - Viral infection [Not Recovered/Not Resolved]
  - Gastrointestinal disorder [Unknown]
  - Cognitive disorder [Not Recovered/Not Resolved]
  - Stress [Recovering/Resolving]
  - Weight increased [Not Recovered/Not Resolved]
  - Blood cholesterol increased [Not Recovered/Not Resolved]
  - White blood cell count decreased [Not Recovered/Not Resolved]
  - Vitamin D decreased [Not Recovered/Not Resolved]
  - Diarrhoea [Unknown]
  - Hypotension [Not Recovered/Not Resolved]
  - Lactose intolerance [Not Recovered/Not Resolved]
  - Ankle fracture [Not Recovered/Not Resolved]
